FAERS Safety Report 8619077-2 (Version None)
Quarter: 2012Q3

REPORT INFORMATION
  Report Type: 
  Country: None (occurrence: None)
  Receive Date: 20120824
  Receipt Date: 20120815
  Transmission Date: 20120928
  Serious: Yes (Other)
  Sender: FDA-Public Use
  Company Number: US-BAYER-201010667NA

PATIENT
  Age: 24 Year
  Sex: Female
  Weight: 71.364 kg

DRUGS (7)
  1. FLUOXETINE HCL [Concomitant]
     Indication: DEPRESSION
     Dates: start: 20051101
  2. TOPAMAX [Concomitant]
     Dosage: 25 MG, UNK
     Route: 048
     Dates: start: 20080102
  3. FLUOXETINE HCL [Concomitant]
     Indication: ANXIETY
  4. IBUPROFEN [Concomitant]
     Indication: BACK PAIN
  5. PROZAC [Concomitant]
  6. YAZ [Suspect]
     Indication: CONTRACEPTION
     Route: 048
     Dates: start: 20071105, end: 20080102
  7. WARFARIN SODIUM [Concomitant]
     Dosage: UNK
     Dates: start: 20080112

REACTIONS (6)
  - HAEMARTHROSIS [None]
  - HAEMATOMA [None]
  - THROMBOPHLEBITIS SUPERFICIAL [None]
  - DEEP VEIN THROMBOSIS [None]
  - PAIN IN EXTREMITY [None]
  - ARTHRALGIA [None]
